FAERS Safety Report 8085999-7 (Version None)
Quarter: 2012Q1

REPORT INFORMATION
  Report Type: 
  Country: None (occurrence: None)
  Receive Date: 20120128
  Receipt Date: 20110413
  Transmission Date: 20120608
  Serious: No
  Sender: FDA-Public Use
  Company Number: US-ABBOTT-11P-163-0718912-00

PATIENT
  Sex: Female

DRUGS (2)
  1. HUMIRA [Suspect]
     Dates: start: 20090602
  2. HUMIRA [Suspect]
     Indication: PSORIASIS
     Dates: start: 20100201, end: 20110201

REACTIONS (7)
  - ALOPECIA AREATA [None]
  - PSORIASIS [None]
  - DERMATITIS [None]
  - SKIN DISORDER [None]
  - ALOPECIA [None]
  - PUSTULAR PSORIASIS [None]
  - GUTTATE PSORIASIS [None]
